FAERS Safety Report 11145276 (Version 1)
Quarter: 2015Q2

REPORT INFORMATION
  Report Type: Report from Study
  Country: US (occurrence: US)
  Receive Date: 20150528
  Receipt Date: 20150528
  Transmission Date: 20150821
  Serious: Yes (Hospitalization, Other)
  Sender: FDA-Public Use
  Company Number: PHEH2015US003418

PATIENT
  Age: 36 Year
  Sex: Female

DRUGS (5)
  1. ALAP//ALPRAZOLAM [Concomitant]
     Indication: PRODUCT USED FOR UNKNOWN INDICATION
     Route: 065
  2. ZYKADIA [Suspect]
     Active Substance: CERITINIB
     Indication: NON-SMALL CELL LUNG CANCER STAGE IV
     Dosage: 600 MG, QD
     Route: 048
     Dates: start: 20131213, end: 20150209
  3. RANITIDINE [Concomitant]
     Active Substance: RANITIDINE\RANITIDINE HYDROCHLORIDE
     Indication: PRODUCT USED FOR UNKNOWN INDICATION
     Dosage: 150 MG, QD
     Route: 065
  4. METOCLOPRAMIDE. [Concomitant]
     Active Substance: METOCLOPRAMIDE
     Indication: PRODUCT USED FOR UNKNOWN INDICATION
     Dosage: 5 MG, UNK BEFORE OXYCODONE
     Route: 065
  5. ENOXAPARIN [Concomitant]
     Active Substance: ENOXAPARIN
     Indication: PRODUCT USED FOR UNKNOWN INDICATION
     Dosage: 130 MG, QD
     Route: 058

REACTIONS (23)
  - Cardiac tamponade [Recovered/Resolved]
  - Brain cancer metastatic [Unknown]
  - Blood pressure decreased [Unknown]
  - Ecchymosis [Unknown]
  - Dyspnoea [Unknown]
  - Breast oedema [Unknown]
  - Goitre [Unknown]
  - Non-small cell lung cancer [Not Recovered/Not Resolved]
  - Pericardial effusion [Unknown]
  - Nausea [Unknown]
  - Vomiting [Unknown]
  - Cough [Unknown]
  - Oedema peripheral [Unknown]
  - Generalised oedema [Unknown]
  - Malignant neoplasm progression [Not Recovered/Not Resolved]
  - Sedation [Unknown]
  - Constipation [Unknown]
  - Pleural effusion [Unknown]
  - Cerebral capillary telangiectasia [Unknown]
  - Central nervous system lesion [Unknown]
  - Neck pain [Unknown]
  - Abdominal pain [Unknown]
  - Chest pain [Unknown]

NARRATIVE: CASE EVENT DATE: 20131220
